FAERS Safety Report 24588695 (Version 4)
Quarter: 2025Q3

REPORT INFORMATION
  Report Type: Spontaneous
  Country: US (occurrence: US)
  Receive Date: 20241107
  Receipt Date: 20250820
  Transmission Date: 20251020
  Serious: Yes (Hospitalization)
  Sender: INSMED
  Company Number: US-INSMED, INC.-2024-03817-US

PATIENT
  Sex: Female

DRUGS (2)
  1. ARIKAYCE [Suspect]
     Active Substance: AMIKACIN
     Indication: Mycobacterial infection
     Dosage: 590 MILLIGRAM, QD
     Route: 055
     Dates: start: 20240831, end: 2024
  2. ARIKAYCE [Suspect]
     Active Substance: AMIKACIN
     Dosage: 590 MILLIGRAM, QD
     Route: 055
     Dates: start: 2024

REACTIONS (5)
  - Pulmonary pain [Unknown]
  - Hospitalisation [Unknown]
  - Oropharyngeal pain [Unknown]
  - Product communication issue [Unknown]
  - Therapy interrupted [Unknown]

NARRATIVE: CASE EVENT DATE: 20240101
